FAERS Safety Report 20379031 (Version 1)
Quarter: 2022Q1

REPORT INFORMATION
  Report Type: Spontaneous
  Country: US (occurrence: None)
  Receive Date: 20220126
  Receipt Date: 20220126
  Transmission Date: 20220423
  Serious: Yes (Hospitalization)
  Sender: FDA-Public Use
  Company Number: None

PATIENT
  Sex: Male

DRUGS (1)
  1. GILENYA [Suspect]
     Active Substance: FINGOLIMOD HYDROCHLORIDE
     Indication: Multiple sclerosis
     Dosage: OTHER QUANTITY : 0.5MG;?FREQUENCY : DAILY;?
     Route: 048
     Dates: start: 20211214

REACTIONS (3)
  - Mental status changes [None]
  - Impatience [None]
  - Patient uncooperative [None]
